FAERS Safety Report 24686337 (Version 1)
Quarter: 2024Q4

REPORT INFORMATION
  Report Type: Spontaneous
  Country: AT (occurrence: AT)
  Receive Date: 20241202
  Receipt Date: 20241202
  Transmission Date: 20250115
  Serious: Yes (Other)
  Sender: PFIZER
  Company Number: AT-PFIZER INC-PV202400154102

PATIENT
  Age: 72 Year
  Sex: Female

DRUGS (1)
  1. LORLATINIB [Suspect]
     Active Substance: LORLATINIB
     Indication: Non-small cell lung cancer
     Dosage: UNK

REACTIONS (2)
  - Hallucination, auditory [Recovered/Resolved]
  - Disease recurrence [Recovered/Resolved]
